FAERS Safety Report 5194143-5 (Version None)
Quarter: 2006Q4

REPORT INFORMATION
  Report Type: 
  Country: None (occurrence: None)
  Receive Date: 20061222
  Receipt Date: 20061221
  Transmission Date: 20070319
  Serious: Yes (Life-Threatening, Hospitalization, Other)
  Sender: FDA-Public Use
  Company Number: HQWYE144210NOV06

PATIENT
  Age: 21 Year
  Sex: Male
  Weight: 75.82 kg

DRUGS (1)
  1. RAPAMUNE [Suspect]
     Indication: ANGIOMYOLIPOMA
     Dosage: 2 MG 1X PER 1 DAY, ORAL
     Route: 048
     Dates: start: 20060414, end: 20061108

REACTIONS (1)
  - CONVERSION DISORDER [None]
